FAERS Safety Report 24965155 (Version 1)
Quarter: 2025Q1

REPORT INFORMATION
  Report Type: Spontaneous
  Country: IN (occurrence: IN)
  Receive Date: 20250213
  Receipt Date: 20250213
  Transmission Date: 20250408
  Serious: Yes (Other)
  Sender: Unknown Manufacturer
  Company Number: IN-KOANAAP-SML-IN-2025-00116

PATIENT
  Age: 3 Decade
  Sex: Male

DRUGS (3)
  1. CAPECITABINE [Suspect]
     Active Substance: CAPECITABINE
     Indication: Intestinal adenocarcinoma
     Dosage: 1500 MG-0- 1500 MG
  2. DOCETAXEL [Suspect]
     Active Substance: DOCETAXEL
     Indication: Intestinal adenocarcinoma
  3. CISPLATIN [Suspect]
     Active Substance: CISPLATIN
     Indication: Intestinal adenocarcinoma

REACTIONS (6)
  - Drug ineffective [Unknown]
  - Disease progression [Unknown]
  - Drug intolerance [Unknown]
  - Febrile neutropenia [Unknown]
  - Nausea [Unknown]
  - Vomiting [Unknown]
